FAERS Safety Report 4786770-1 (Version None)
Quarter: 2005Q4

REPORT INFORMATION
  Report Type: 
  Country: None (occurrence: None)
  Receive Date: 20051004
  Receipt Date: 20050921
  Transmission Date: 20060501
  Serious: Yes (Hospitalization)
  Sender: FDA-Public Use
  Company Number: JP-BRISTOL-MYERS SQUIBB COMPANY-13118484

PATIENT
  Age: 44 Year
  Sex: Male

DRUGS (1)
  1. KENACORT-A [Suspect]
     Indication: MACULAR OEDEMA
     Route: 031

REACTIONS (1)
  - GLAUCOMA [None]
